FAERS Safety Report 8564730-2 (Version None)
Quarter: 2012Q3

REPORT INFORMATION
  Report Type: 
  Country: None (occurrence: None)
  Receive Date: 20120803
  Receipt Date: 20120727
  Transmission Date: 20120928
  Serious: Yes (Hospitalization, Disabling, Other)
  Sender: FDA-Public Use
  Company Number: US-BAYER-2012-076813

PATIENT
  Age: 31 Year
  Sex: Female

DRUGS (1)
  1. MIRENA [Suspect]
     Indication: CONTRACEPTION
     Dosage: 20 MCG/24HR, CONT
     Route: 015
     Dates: start: 20100101, end: 20120727

REACTIONS (22)
  - DYSPAREUNIA [None]
  - ABDOMINAL PAIN [None]
  - PELVIC PAIN [None]
  - SENSATION OF PRESSURE [None]
  - DIZZINESS [None]
  - NAUSEA [None]
  - VAGINAL LESION [None]
  - HEART RATE INCREASED [None]
  - GENITAL LESION [None]
  - DISTURBANCE IN ATTENTION [None]
  - FEELING ABNORMAL [None]
  - ANXIETY [None]
  - FUNGAL INFECTION [None]
  - MIGRAINE [None]
  - PAIN [None]
  - VISION BLURRED [None]
  - DYSPNOEA [None]
  - PURULENT DISCHARGE [None]
  - VOMITING [None]
  - WOUND HAEMORRHAGE [None]
  - BACK PAIN [None]
  - BREAST PAIN [None]
